FAERS Safety Report 25567713 (Version 2)
Quarter: 2025Q3

REPORT INFORMATION
  Report Type: Report from Study
  Country: JP (occurrence: JP)
  Receive Date: 20250716
  Receipt Date: 20250826
  Transmission Date: 20251021
  Serious: Yes (Hospitalization)
  Sender: NOVARTIS
  Company Number: JP-002147023-NVSJ2022JP099884

PATIENT
  Age: 10 Month
  Sex: Female
  Weight: 7.16 kg

DRUGS (25)
  1. ZOLGENSMA [Suspect]
     Active Substance: ONASEMNOGENE ABEPARVOVEC-XIOI
     Indication: Spinal muscular atrophy
     Route: 042
     Dates: start: 20221020, end: 20221020
  2. ZOLGENSMA [Suspect]
     Active Substance: ONASEMNOGENE ABEPARVOVEC-XIOI
     Route: 042
     Dates: start: 20200708, end: 20200708
  3. PREDNISOLONE [Concomitant]
     Active Substance: PREDNISOLONE
     Indication: Product used for unknown indication
     Route: 048
     Dates: start: 20221019, end: 20221023
  4. PREDNISOLONE [Concomitant]
     Active Substance: PREDNISOLONE
     Route: 048
     Dates: start: 20221024, end: 20221031
  5. PREDNISOLONE [Concomitant]
     Active Substance: PREDNISOLONE
     Route: 048
     Dates: start: 20221101, end: 20221113
  6. PREDNISOLONE [Concomitant]
     Active Substance: PREDNISOLONE
     Route: 048
     Dates: start: 20221114, end: 20221118
  7. PREDNISOLONE [Concomitant]
     Active Substance: PREDNISOLONE
     Route: 048
     Dates: start: 20221119, end: 20221202
  8. PREDNISOLONE [Concomitant]
     Active Substance: PREDNISOLONE
     Route: 048
     Dates: start: 20221203, end: 20221219
  9. PREDNISOLONE [Concomitant]
     Active Substance: PREDNISOLONE
     Route: 065
     Dates: start: 20200707, end: 20200806
  10. PREDNISOLONE [Concomitant]
     Active Substance: PREDNISOLONE
     Route: 065
     Dates: start: 20200807, end: 20200820
  11. PREDNISOLONE [Concomitant]
     Active Substance: PREDNISOLONE
     Route: 065
     Dates: start: 20200821, end: 20200903
  12. ROXATIDINE ACETATE HYDROCHLORIDE [Concomitant]
     Active Substance: ROXATIDINE ACETATE HYDROCHLORIDE
     Indication: Product used for unknown indication
     Route: 065
     Dates: start: 20221019
  13. MAGNESIUM OXIDE [Concomitant]
     Active Substance: MAGNESIUM OXIDE
     Indication: Product used for unknown indication
     Route: 065
  14. NUSINERSEN [Concomitant]
     Active Substance: NUSINERSEN
     Indication: Product used for unknown indication
     Route: 065
     Dates: start: 20210812
  15. NUSINERSEN [Concomitant]
     Active Substance: NUSINERSEN
     Route: 065
     Dates: start: 20210826
  16. NUSINERSEN [Concomitant]
     Active Substance: NUSINERSEN
     Route: 065
     Dates: start: 20210909
  17. NUSINERSEN [Concomitant]
     Active Substance: NUSINERSEN
     Route: 065
     Dates: start: 20211021
  18. NUSINERSEN [Concomitant]
     Active Substance: NUSINERSEN
     Route: 065
     Dates: start: 20220210
  19. NUSINERSEN [Concomitant]
     Active Substance: NUSINERSEN
     Route: 065
     Dates: start: 20220927
  20. NUSINERSEN [Concomitant]
     Active Substance: NUSINERSEN
     Route: 065
     Dates: start: 20221027
  21. NUSINERSEN [Concomitant]
     Active Substance: NUSINERSEN
     Route: 065
     Dates: start: 20230216
  22. NUSINERSEN [Concomitant]
     Active Substance: NUSINERSEN
     Route: 065
     Dates: start: 20230615
  23. NUSINERSEN [Concomitant]
     Active Substance: NUSINERSEN
     Route: 065
     Dates: start: 20231019
  24. NUSINERSEN [Concomitant]
     Active Substance: NUSINERSEN
     Route: 065
     Dates: start: 20240215
  25. NUSINERSEN [Concomitant]
     Active Substance: NUSINERSEN
     Route: 065
     Dates: start: 20240711

REACTIONS (13)
  - Rhinovirus infection [Recovered/Resolved]
  - Rhinorrhoea [Unknown]
  - Bronchiolitis [Unknown]
  - Hepatic function abnormal [Recovered/Resolved]
  - Aspartate aminotransferase increased [Recovered/Resolved]
  - Alanine aminotransferase increased [Recovered/Resolved]
  - Platelet count decreased [Recovered/Resolved]
  - Pyrexia [Recovered/Resolved]
  - Hepatic enzyme increased [Unknown]
  - Pyrexia [Recovered/Resolved]
  - Decreased appetite [Unknown]
  - Nasopharyngitis [Recovered/Resolved]
  - Hepatic function abnormal [Recovered/Resolved]

NARRATIVE: CASE EVENT DATE: 20221022
